FAERS Safety Report 10970764 (Version 6)
Quarter: 2015Q4

REPORT INFORMATION
  Report Type: Report from Study
  Country: US (occurrence: US)
  Receive Date: 20150331
  Receipt Date: 20151216
  Transmission Date: 20160304
  Serious: Yes (Hospitalization, Other)
  Sender: FDA-Public Use
  Company Number: US-PFIZER INC-2015108398

PATIENT
  Age: 54 Year
  Sex: Male
  Weight: 98 kg

DRUGS (2)
  1. TRAMETINIB [Suspect]
     Active Substance: TRAMETINIB
     Indication: SARCOMA
     Dosage: 1.5 MG, ONCE DAILY (QD)
     Route: 048
     Dates: start: 20141113
  2. PALBOCICLIB [Suspect]
     Active Substance: PALBOCICLIB
     Indication: SARCOMA
     Dosage: 100 MG, 21 DAYS ON/7 DAYS OFF
     Route: 048
     Dates: start: 20141113

REACTIONS (2)
  - Herpes zoster disseminated [Recovered/Resolved]
  - Retinal haemorrhage [Not Recovered/Not Resolved]

NARRATIVE: CASE EVENT DATE: 20150219
